FAERS Safety Report 6481637-5 (Version None)
Quarter: 2009Q4

REPORT INFORMATION
  Report Type: 
  Country: None (occurrence: None)
  Receive Date: 20091208
  Receipt Date: 20090319
  Transmission Date: 20100525
  Serious: No
  Sender: FDA-Public Use
  Company Number: US-AMGEN-KDL339324

PATIENT
  Sex: Female

DRUGS (4)
  1. ENBREL [Suspect]
     Indication: RHEUMATOID ARTHRITIS
  2. WELLBUTRIN [Concomitant]
  3. RISPERDAL [Concomitant]
  4. AMBIEN [Concomitant]

REACTIONS (2)
  - DECREASED ACTIVITY [None]
  - RHEUMATOID ARTHRITIS [None]
